FAERS Safety Report 21034098 (Version 1)
Quarter: 2022Q3

REPORT INFORMATION
  Report Type: Spontaneous
  Country: JP (occurrence: JP)
  Receive Date: 20220701
  Receipt Date: 20220701
  Transmission Date: 20221027
  Serious: Yes (Other)
  Sender: FDA-Public Use
  Company Number: JP-BAYER-2022A089474

PATIENT

DRUGS (2)
  1. NEXAVAR [Suspect]
     Active Substance: SORAFENIB
     Indication: Papillary thyroid cancer
  2. NEXAVAR [Suspect]
     Active Substance: SORAFENIB
     Indication: Tumour invasion

REACTIONS (1)
  - Metastases to lung [None]
